FAERS Safety Report 15709686 (Version 2)
Quarter: 2024Q3

REPORT INFORMATION
  Report Type: Spontaneous
  Country: US (occurrence: US)
  Receive Date: 20181211
  Receipt Date: 20240821
  Transmission Date: 20241017
  Serious: Yes (Other)
  Sender: ELI LILLY AND CO
  Company Number: US-ELI_LILLY_AND_COMPANY-US201812002784

PATIENT
  Age: 75 Year
  Sex: Female

DRUGS (2)
  1. TALTZ [Suspect]
     Active Substance: IXEKIZUMAB
     Indication: Psoriasis
     Dosage: UNK UNK, 2/M
     Route: 065
     Dates: start: 201806
  2. TALTZ [Suspect]
     Active Substance: IXEKIZUMAB
     Dosage: 80 MG, MONTHLY (1/M)
     Route: 065

REACTIONS (3)
  - Cataract [Unknown]
  - Visual impairment [Unknown]
  - Inappropriate schedule of product administration [Unknown]
